FAERS Safety Report 22345807 (Version 2)
Quarter: 2023Q2

REPORT INFORMATION
  Report Type: Spontaneous
  Country: BR (occurrence: BR)
  Receive Date: 20230519
  Receipt Date: 20230626
  Transmission Date: 20230721
  Serious: Yes (Death, Other)
  Sender: FDA-Public Use
  Company Number: BR-TEVA BRAZIL-2023-BR-2888162

PATIENT
  Sex: Female

DRUGS (1)
  1. COPAXONE [Suspect]
     Active Substance: GLATIRAMER ACETATE
     Indication: Product used for unknown indication
     Dosage: UNKNOWN FORM OF STRENGTH
     Route: 065

REACTIONS (7)
  - Neoplasm malignant [Fatal]
  - Multiple sclerosis [Unknown]
  - Feeling abnormal [Unknown]
  - Chest discomfort [Unknown]
  - Malaise [Unknown]
  - Nausea [Unknown]
  - Nervousness [Unknown]
